FAERS Safety Report 13203720 (Version 3)
Quarter: 2017Q2

REPORT INFORMATION
  Report Type: Report from Study
  Country: None (occurrence: US)
  Receive Date: 20170209
  Receipt Date: 20170412
  Transmission Date: 20170830
  Serious: Yes (Hospitalization, Other)
  Sender: FDA-Public Use
  Company Number: US-ABBVIE-17K-163-1861342-00

PATIENT
  Age: 47 Year
  Sex: Female
  Weight: 87.17 kg

DRUGS (3)
  1. HUMIRA [Suspect]
     Active Substance: ADALIMUMAB
     Indication: RHEUMATOID ARTHRITIS
  2. HUMIRA [Suspect]
     Active Substance: ADALIMUMAB
     Indication: PSORIATIC ARTHROPATHY
     Route: 058
     Dates: start: 201610
  3. GABAPENTIN. [Suspect]
     Active Substance: GABAPENTIN
     Indication: PRODUCT USED FOR UNKNOWN INDICATION
     Route: 065
     Dates: end: 201702

REACTIONS (5)
  - Tremor [Recovered/Resolved]
  - Alcohol use [Recovering/Resolving]
  - Suicide attempt [Recovered/Resolved]
  - Intentional overdose [Recovering/Resolving]
  - Stress [Not Recovered/Not Resolved]

NARRATIVE: CASE EVENT DATE: 201612
